FAERS Safety Report 10380814 (Version 1)
Quarter: 2014Q1

REPORT INFORMATION
  Report Type: Spontaneous
  Country: US (occurrence: None)
  Receive Date: 20140306
  Receipt Date: 20140306
  Transmission Date: 20141002
  Serious: Yes (Other)
  Sender: FDA-Public Use
  Company Number: 163-21880-13072297

PATIENT
  Age: 77 Year
  Sex: Female

DRUGS (11)
  1. REVLIMID (LENALIDOMIDE) (25 MILLIGRAM, CAPSULES) [Suspect]
     Indication: NON-HODGKIN^S LYMPHOMA
     Route: 048
     Dates: start: 20130612
  2. ACYCLOVIR (ACICLOVIR) (ACICLOVIR) [Concomitant]
  3. SULFAMETHOXAZOLE/TRIMETHOPRIM DS [Concomitant]
  4. CALCIUM [Concomitant]
  5. FISH OIL [Concomitant]
  6. FOLIC ACID [Concomitant]
  7. RANITIDINE [Concomitant]
  8. ASPIRIN (ACETYLSALICYLIC ACID) [Concomitant]
  9. SYNTHROID (LEVOTHYROXINE SODIUM) [Concomitant]
  10. ZANTAC (RANITIDINE HYDROCHLORIDE) [Concomitant]
  11. BACTRIM DS [Concomitant]

REACTIONS (1)
  - Haemoglobin decreased [None]
